FAERS Safety Report 17883925 (Version 2)
Quarter: 2022Q1

REPORT INFORMATION
  Report Type: Spontaneous
  Country: US (occurrence: US)
  Receive Date: 20200611
  Receipt Date: 20220204
  Transmission Date: 20220423
  Serious: Yes (Death, Other)
  Sender: FDA-Public Use
  Company Number: US-SAARTEMIS-SAC202006090223

PATIENT
  Age: 93 Year
  Sex: Female

DRUGS (1)
  1. ZANTAC [Suspect]
     Active Substance: RANITIDINE HYDROCHLORIDE
     Dosage: UNK, QD
     Dates: start: 201101, end: 201901

REACTIONS (2)
  - Plasma cell myeloma [Fatal]
  - Haematological malignancy [Unknown]

NARRATIVE: CASE EVENT DATE: 20191001
